FAERS Safety Report 5104831-4 (Version None)
Quarter: 2006Q3

REPORT INFORMATION
  Report Type: 
  Country: None (occurrence: None)
  Receive Date: 20060911
  Receipt Date: 20060911
  Transmission Date: 20061208
  Serious: No
  Sender: FDA-Public Use
  Company Number: None

PATIENT
  Age: 64 Year
  Sex: Female
  Weight: 72.5755 kg

DRUGS (1)
  1. ZETIA [Suspect]
     Indication: BLOOD CHOLESTEROL INCREASED
     Dosage: TAKEN ONCE A DAY    ONCE A DAY
     Dates: start: 20040907, end: 20060819

REACTIONS (3)
  - AMYOTROPHIC LATERAL SCLEROSIS [None]
  - SPEECH DISORDER [None]
  - STRESS [None]
